FAERS Safety Report 13214281 (Version 2)
Quarter: 2018Q2

REPORT INFORMATION
  Report Type: Spontaneous
  Country: JP (occurrence: JP)
  Receive Date: 20170210
  Receipt Date: 20180509
  Transmission Date: 20180711
  Serious: Yes (Hospitalization, Other)
  Sender: FDA-Public Use
  Company Number: JP-009507513-1702JPN004234

PATIENT
  Age: 88 Year
  Sex: Male

DRUGS (1)
  1. REFLEX [Suspect]
     Active Substance: MIRTAZAPINE
     Indication: DEPRESSION
     Dosage: 30 MG, DAY ONCE DAILY AT BEDTIME
     Route: 048
     Dates: start: 2009, end: 2017

REACTIONS (13)
  - Arthralgia [Unknown]
  - Abdominal distension [Unknown]
  - Constipation [Unknown]
  - Eczema [Unknown]
  - Limb discomfort [Unknown]
  - Seizure [Unknown]
  - Dehydration [Unknown]
  - Eczema [Unknown]
  - Arrhythmia [Unknown]
  - Nightmare [Unknown]
  - Hyperglycaemic hyperosmolar nonketotic syndrome [Unknown]
  - Pyrexia [Unknown]
  - Hyperhidrosis [Unknown]

NARRATIVE: CASE EVENT DATE: 2016
